FAERS Safety Report 5097830-2 (Version None)
Quarter: 2006Q3

REPORT INFORMATION
  Report Type: 
  Country: None (occurrence: None)
  Receive Date: 20060905
  Receipt Date: 20060822
  Transmission Date: 20061208
  Serious: Yes (Hospitalization)
  Sender: FDA-Public Use
  Company Number: CLOF-10309

PATIENT
  Age: 6 Year
  Sex: Female
  Weight: 21.3 kg

DRUGS (22)
  1. CLOFARABINE [Suspect]
     Indication: ACUTE LYMPHOCYTIC LEUKAEMIA
     Dosage: 17 MG QD X 5 IV
     Route: 042
     Dates: start: 20060720, end: 20060724
  2. CLOFARABINE [Suspect]
     Indication: LEUKAEMIA RECURRENT
     Dosage: 17 MG QD X 5 IV
     Route: 042
     Dates: start: 20060720, end: 20060724
  3. ETOPOSIDE [Suspect]
     Indication: ACUTE LYMPHOCYTIC LEUKAEMIA
     Dosage: 63 MG QD X 5 IV
     Route: 042
     Dates: start: 20060720, end: 20060724
  4. ETOPOSIDE [Suspect]
     Indication: LEUKAEMIA RECURRENT
     Dosage: 63 MG QD X 5 IV
     Route: 042
     Dates: start: 20060720, end: 20060724
  5. CYCLOPHOSPHAMIDE [Suspect]
     Indication: ACUTE LYMPHOCYTIC LEUKAEMIA
     Dosage: 375 MG QD X 5 IV
     Route: 042
     Dates: start: 20060720, end: 20060724
  6. CYCLOPHOSPHAMIDE [Suspect]
     Indication: LEUKAEMIA RECURRENT
     Dosage: 375 MG QD X 5 IV
     Route: 042
     Dates: start: 20060720, end: 20060724
  7. MORPHINE [Concomitant]
  8. DIPHENHYDRAMINE HCL [Concomitant]
  9. ACETAMINOPHEN [Concomitant]
  10. REGULAR INSULIN [Concomitant]
  11. FAMOTIDINE [Concomitant]
  12. NEUPOGEN [Concomitant]
  13. ESOMEPRAZOLE MAGNESIUM [Concomitant]
  14. TPN [Concomitant]
  15. SENNOSIDES [Concomitant]
  16. IMMUNE GLOBULIN (HUMAN) [Concomitant]
  17. LACTOBACILLUS [Concomitant]
  18. LORAZEPAM [Concomitant]
  19. TRIMETHOPRIM [Concomitant]
  20. ONDANSETRON [Concomitant]
  21. METOCLOPRAMIDE [Concomitant]
  22. SUCRALFATE [Concomitant]

REACTIONS (26)
  - ABDOMINAL DISTENSION [None]
  - ABDOMINAL PAIN [None]
  - ALPHA HAEMOLYTIC STREPTOCOCCAL INFECTION [None]
  - ASCITES [None]
  - BK VIRUS INFECTION [None]
  - BLOOD AMYLASE INCREASED [None]
  - BONE MARROW FAILURE [None]
  - COLITIS [None]
  - CYSTITIS HAEMORRHAGIC [None]
  - FEBRILE NEUTROPENIA [None]
  - GENERALISED OEDEMA [None]
  - HALLUCINATION [None]
  - HEPATOSPLENOMEGALY [None]
  - HYPERGLYCAEMIA [None]
  - HYPERTENSION [None]
  - HYPOXIA [None]
  - LIPASE INCREASED [None]
  - LYMPHADENOPATHY [None]
  - METABOLIC ACIDOSIS [None]
  - PERICARDIAL EFFUSION [None]
  - PLEURAL EFFUSION [None]
  - PNEUMONIA [None]
  - STAPHYLOCOCCAL BACTERAEMIA [None]
  - STREPTOCOCCAL BACTERAEMIA [None]
  - TACHYPNOEA [None]
  - VIRUS URINE TEST POSITIVE [None]
